FAERS Safety Report 14651467 (Version 2)
Quarter: 2018Q2

REPORT INFORMATION
  Report Type: Spontaneous
  Country: US (occurrence: US)
  Receive Date: 20180316
  Receipt Date: 20180405
  Transmission Date: 20180711
  Serious: Yes (Other)
  Sender: FDA-Public Use
  Company Number: PHEH2018US009784

PATIENT
  Age: 76 Year
  Sex: Male

DRUGS (3)
  1. TAFINLAR [Suspect]
     Active Substance: DABRAFENIB MESYLATE
     Indication: LANGERHANS^ CELL HISTIOCYTOSIS
     Dosage: 100 MG, BID
     Route: 048
     Dates: start: 20160109
  2. TAFINLAR [Suspect]
     Active Substance: DABRAFENIB MESYLATE
     Indication: SQUAMOUS CELL CARCINOMA OF SKIN
     Dosage: 2 DF, BID
     Route: 048
     Dates: start: 20161220
  3. TAFINLAR [Suspect]
     Active Substance: DABRAFENIB MESYLATE
     Indication: HISTIOCYTOSIS

REACTIONS (8)
  - Glaucoma [Unknown]
  - Product use in unapproved indication [Unknown]
  - Fatigue [Unknown]
  - Hypokinesia [Unknown]
  - Urinary tract infection [Unknown]
  - Rash [Recovering/Resolving]
  - Confusional state [Unknown]
  - Dry skin [Unknown]

NARRATIVE: CASE EVENT DATE: 20180109
